FAERS Safety Report 5059789-3 (Version None)
Quarter: 2006Q3

REPORT INFORMATION
  Report Type: 
  Country: None (occurrence: None)
  Receive Date: 20060724
  Receipt Date: 20050419
  Transmission Date: 20061208
  Serious: Yes (Death, Life-Threatening, Disabling)
  Sender: FDA-Public Use
  Company Number: JP-GLAXOSMITHKLINE-B0378683A

PATIENT
  Age: 7 Year
  Sex: Male
  Weight: 25 kg

DRUGS (28)
  1. ALKERAN [Suspect]
     Indication: STEM CELL TRANSPLANT
     Dosage: 64MG PER DAY
     Route: 042
     Dates: start: 20040618, end: 20040624
  2. THIOTEPA [Suspect]
     Indication: STEM CELL TRANSPLANT
     Dosage: 184MG PER DAY
     Dates: start: 20040618, end: 20040624
  3. NEUTROGIN [Concomitant]
     Dates: start: 20040630, end: 20040712
  4. NEU-UP [Concomitant]
     Dates: start: 20040713, end: 20040713
  5. BROACT [Concomitant]
     Indication: FEBRILE NEUTROPENIA
     Route: 042
     Dates: start: 20040626, end: 20040630
  6. BROACT [Concomitant]
     Route: 042
     Dates: start: 20040823, end: 20040827
  7. PRODIF [Concomitant]
     Indication: FUNGAL INFECTION
     Route: 042
     Dates: start: 20040626, end: 20040709
  8. MINOCYCLINE HCL [Concomitant]
     Indication: FEBRILE NEUTROPENIA
     Route: 042
     Dates: start: 20040630, end: 20040706
  9. MEROPEN [Concomitant]
     Indication: FEBRILE NEUTROPENIA
     Route: 042
     Dates: start: 20040630, end: 20040707
  10. VANCOMYCIN [Concomitant]
     Route: 042
     Dates: start: 20040706, end: 20040712
  11. MODACIN [Concomitant]
     Indication: FEBRILE NEUTROPENIA
     Route: 042
     Dates: start: 20040707, end: 20040720
  12. ALBUMIN [Concomitant]
     Indication: HYPOALBUMINAEMIA
     Dates: start: 20040708, end: 20040710
  13. BAKTAR [Concomitant]
     Route: 048
     Dates: start: 20040616
  14. POLYMYXIN B SULFATE [Concomitant]
     Route: 048
     Dates: start: 20040616, end: 20040706
  15. DIFLUCAN [Concomitant]
     Indication: FUNGAL INFECTION
     Route: 048
     Dates: start: 20040616, end: 20040625
  16. URSO [Concomitant]
     Indication: VENOOCCLUSIVE LIVER DISEASE
     Route: 048
     Dates: start: 20040616, end: 20040713
  17. ZOVIRAX [Concomitant]
     Indication: HERPES VIRUS INFECTION
     Route: 048
     Dates: start: 20040621, end: 20040711
  18. VENOGLOBULIN [Concomitant]
     Indication: INFECTION PROPHYLAXIS
     Route: 042
     Dates: start: 20040622, end: 20040802
  19. ATARAX [Concomitant]
     Indication: PAIN
     Dates: start: 20040618, end: 20040801
  20. GASTER [Concomitant]
     Indication: GASTROINTESTINAL MUCOSAL DISORDER
     Dates: start: 20040705, end: 20040716
  21. ROPION [Concomitant]
     Indication: ANTIPYRESIS
     Route: 042
     Dates: start: 20040703, end: 20040711
  22. CONTOMIN [Concomitant]
     Indication: INSOMNIA
     Route: 030
     Dates: start: 20040708, end: 20040101
  23. PRIMPERAN TAB [Concomitant]
     Indication: VOMITING
     Route: 042
     Dates: start: 20040627, end: 20040706
  24. PENTAZOCINE LACTATE [Concomitant]
     Indication: PAIN
     Dates: start: 20040626, end: 20040705
  25. METILON [Concomitant]
     Indication: ANTIPYRESIS
     Dates: start: 20040704, end: 20040101
  26. TATHION [Concomitant]
     Indication: LIVER DISORDER
     Dates: start: 20040621, end: 20040626
  27. KYTRIL [Concomitant]
     Indication: VOMITING
     Route: 042
     Dates: start: 20040616, end: 20040625
  28. JAPANESE MEDICATION [Concomitant]
     Indication: LIVER DISORDER
     Route: 042
     Dates: start: 20040621, end: 20040626

REACTIONS (15)
  - ABDOMINAL PAIN [None]
  - ANAL STENOSIS [None]
  - DIARRHOEA [None]
  - FUNGAL INFECTION [None]
  - GASTROINTESTINAL MUCOSAL DISORDER [None]
  - HAEMATOCHEZIA [None]
  - HEPATIC VEIN OCCLUSION [None]
  - HYPOALBUMINAEMIA [None]
  - MUCOUS MEMBRANE DISORDER [None]
  - NEUTROPENIA [None]
  - PAIN [None]
  - PHARYNGOLARYNGEAL PAIN [None]
  - PYREXIA [None]
  - RHABDOMYOSARCOMA [None]
  - VENOOCCLUSIVE LIVER DISEASE [None]
